FAERS Safety Report 24115199 (Version 2)
Quarter: 2024Q3

REPORT INFORMATION
  Report Type: Spontaneous
  Country: AU (occurrence: AU)
  Receive Date: 20240721
  Receipt Date: 20240726
  Transmission Date: 20241016
  Serious: Yes (Other)
  Sender: BAXTER
  Company Number: AU-BAXTER-2024BAX021536

PATIENT
  Age: 60 Year
  Sex: Female
  Weight: 94.6 kg

DRUGS (3)
  1. SODIUM CHLORIDE [Suspect]
     Active Substance: SODIUM CHLORIDE
     Indication: Medication dilution
     Dosage: 0.9% SODIUM CHLORIDE USED TO DILUTE 420 MG PERTUZUMAB (69. 8 MLS OF 300 MLS ADMINISTERED)
     Route: 065
     Dates: start: 20240710
  2. PERJETA [Suspect]
     Active Substance: PERTUZUMAB
     Indication: Breast cancer
     Dosage: USED FOR CYCLE 3 WAS A COMPASSIONATE DRUG, 420 MG PERTUZUMAB DILUED IN 0.9% SODIUM CHLORIDE (69. 8 M
     Route: 065
     Dates: start: 20240710, end: 20240710
  3. PERJETA [Suspect]
     Active Substance: PERTUZUMAB
     Dosage: 420 MG (CYCLE 4, 10 MIN. INTO INFUSION)
     Route: 042
     Dates: start: 20240717, end: 20240717

REACTIONS (16)
  - Drug hypersensitivity [Recovered/Resolved]
  - Feeling hot [Recovered/Resolved]
  - Flushing [Recovered/Resolved]
  - Dyspnoea [Recovered/Resolved]
  - Chest discomfort [Recovered/Resolved]
  - Back pain [Recovered/Resolved]
  - Chest pain [Recovered/Resolved]
  - Heart rate increased [Recovered/Resolved]
  - Feeling cold [Recovered/Resolved]
  - Chills [Recovered/Resolved]
  - Fatigue [Unknown]
  - Epistaxis [Unknown]
  - Back pain [Recovered/Resolved]
  - Flushing [Recovered/Resolved]
  - Feeling hot [Recovered/Resolved]
  - Rash [Recovering/Resolving]

NARRATIVE: CASE EVENT DATE: 20240710
